FAERS Safety Report 16802252 (Version 2)
Quarter: 2019Q3

REPORT INFORMATION
  Report Type: Spontaneous
  Country: US (occurrence: US)
  Receive Date: 20190912
  Receipt Date: 20190925
  Transmission Date: 20191005
  Serious: No
  Sender: FDA-Public Use
  Company Number: US-TEVA-2019-US-1105707

PATIENT
  Sex: Female
  Weight: 48 kg

DRUGS (3)
  1. BUPRENORPHINE TRANSDERMAL SYSTEM [Suspect]
     Active Substance: BUPRENORPHINE
     Dosage: FORM STRENGTH: 20 MCG/HR
     Route: 062
  2. BUPRENORPHINE TRANSDERMAL SYSTEM [Suspect]
     Active Substance: BUPRENORPHINE
     Indication: PAIN
     Dosage: FORM STRENGTH: 10 MCG/HR
     Route: 062
  3. BUPRENORPHINE TRANSDERMAL SYSTEM [Suspect]
     Active Substance: BUPRENORPHINE
     Route: 062

REACTIONS (3)
  - Abscess [Unknown]
  - Drug ineffective [Unknown]
  - Product adhesion issue [Unknown]
